FAERS Safety Report 24426543 (Version 2)
Quarter: 2025Q3

REPORT INFORMATION
  Report Type: Spontaneous
  Country: US (occurrence: US)
  Receive Date: 20241011
  Receipt Date: 20250816
  Transmission Date: 20251020
  Serious: No
  Sender: ALEXION PHARMACEUTICALS
  Company Number: US-AstraZeneca-2024A182747

PATIENT
  Sex: Male

DRUGS (2)
  1. FASENRA [Suspect]
     Active Substance: BENRALIZUMAB
  2. FASENRA [Suspect]
     Active Substance: BENRALIZUMAB

REACTIONS (4)
  - Condition aggravated [Unknown]
  - Wrong technique in device usage process [Unknown]
  - Incorrect dose administered by device [Unknown]
  - Device issue [Unknown]
